FAERS Safety Report 15933160 (Version 1)
Quarter: 2019Q1

REPORT INFORMATION
  Report Type: Spontaneous
  Country: FR (occurrence: FR)
  Receive Date: 20190207
  Receipt Date: 20190207
  Transmission Date: 20190417
  Serious: Yes (Other)
  Sender: FDA-Public Use
  Company Number: FR-GLAXOSMITHKLINE-FR2019020769

PATIENT
  Age: 10 Year
  Sex: Female

DRUGS (1)
  1. VOLTARENE (DICLOFENAC SODIUM) [Suspect]
     Active Substance: DICLOFENAC SODIUM
     Indication: WRONG PRODUCT ADMINISTERED
     Dosage: 75 MG, QD
     Route: 048
     Dates: start: 20190114, end: 20190114

REACTIONS (2)
  - Discoloured vomit [Not Recovered/Not Resolved]
  - Wrong product administered [Recovered/Resolved]

NARRATIVE: CASE EVENT DATE: 20190114
